FAERS Safety Report 11154922 (Version 1)
Quarter: 2015Q2

REPORT INFORMATION
  Report Type: Spontaneous
  Country: GB (occurrence: None)
  Receive Date: 20150529
  Receipt Date: 20150529
  Transmission Date: 20150821
  Serious: Yes (Other)
  Sender: FDA-Public Use
  Company Number: CL-635-2015

PATIENT
  Age: 30 Year
  Sex: Female

DRUGS (2)
  1. FLUCONAZOLE. [Suspect]
     Active Substance: FLUCONAZOLE
     Indication: VAGINAL INFECTION
     Route: 048
  2. FLUCONAZOLE. [Suspect]
     Active Substance: FLUCONAZOLE
     Indication: DISEASE RECURRENCE
     Route: 048

REACTIONS (6)
  - Rash [None]
  - Blister [None]
  - Rash erythematous [None]
  - Skin reaction [None]
  - Pruritus [None]
  - Rash vesicular [None]
